FAERS Safety Report 6382845-4 (Version None)
Quarter: 2009Q3

REPORT INFORMATION
  Report Type: 
  Country: None (occurrence: None)
  Receive Date: 20090928
  Receipt Date: 20090928
  Transmission Date: 20100115
  Serious: Yes (Hospitalization)
  Sender: FDA-Public Use
  Company Number: None

PATIENT

DRUGS (1)
  1. JANUVIA [Suspect]
     Dosage: 100 MG Q DAILY PO
     Route: 048

REACTIONS (3)
  - DEHYDRATION [None]
  - PANCREATITIS ACUTE [None]
  - RENAL DISORDER [None]
